FAERS Safety Report 4434341-9 (Version None)
Quarter: 2004Q3

REPORT INFORMATION
  Report Type: 
  Country: None (occurrence: None)
  Receive Date: 20040826
  Receipt Date: 20040820
  Transmission Date: 20050211
  Serious: Yes (Life-Threatening)
  Sender: FDA-Public Use
  Company Number: US-MERCK-0408USA01700

PATIENT
  Age: 66 Year
  Sex: Male

DRUGS (2)
  1. [THERAPY UNSPECIFIED] [Concomitant]
     Route: 065
  2. CANCIDAS [Suspect]
     Indication: CANDIDIASIS
     Route: 041

REACTIONS (3)
  - DRUG INEFFECTIVE [None]
  - RASH [None]
  - THERAPY NON-RESPONDER [None]
